FAERS Safety Report 7584325-7 (Version None)
Quarter: 2011Q2

REPORT INFORMATION
  Report Type: 
  Country: None (occurrence: None)
  Receive Date: 20110630
  Receipt Date: 20110621
  Transmission Date: 20111010
  Serious: Yes (Hospitalization)
  Sender: FDA-Public Use
  Company Number: US-JNJFOC-20110505416

PATIENT
  Sex: Female
  Weight: 64.4 kg

DRUGS (12)
  1. CIPROFLOXACIN [Suspect]
     Indication: ANTIBIOTIC THERAPY
  2. ANTIBIOTIC [Suspect]
     Indication: INFLAMMATORY BOWEL DISEASE
  3. MESALAMINE [Suspect]
     Indication: PRODUCT USED FOR UNKNOWN INDICATION
  4. VITAMIN AND MINERAL PRENATAL SUPPLEMENT W/ FOLIC ACID CAP [Concomitant]
  5. REMICADE [Suspect]
     Indication: CROHN'S DISEASE
     Route: 042
     Dates: start: 20110427
  6. PREVACID [Concomitant]
  7. VITAMIN D [Concomitant]
  8. DIPHENHYDRAMINE [Concomitant]
  9. REMICADE [Suspect]
     Route: 042
     Dates: start: 20110507
  10. FLAGYL [Concomitant]
     Indication: ANTIBIOTIC THERAPY
  11. TUBERCULIN NOS [Concomitant]
  12. PREDNISONE [Concomitant]
     Route: 048

REACTIONS (2)
  - DEHYDRATION [None]
  - CROHN'S DISEASE [None]
